FAERS Safety Report 7496479-1 (Version None)
Quarter: 2011Q2

REPORT INFORMATION
  Report Type: 
  Country: None (occurrence: None)
  Receive Date: 20110523
  Receipt Date: 20110512
  Transmission Date: 20111010
  Serious: Yes (Hospitalization)
  Sender: FDA-Public Use
  Company Number: US-ROCHE-739560

PATIENT
  Sex: Female
  Weight: 72.1 kg

DRUGS (17)
  1. CARBOPLATIN [Suspect]
     Route: 042
     Dates: start: 20100720
  2. LOVASTATIN [Concomitant]
     Dates: start: 20020101
  3. METFORMIN [Concomitant]
     Dates: start: 20020101, end: 20100709
  4. ROPINIROLE [Concomitant]
     Dates: start: 20090101, end: 20100709
  5. BEVACIZUMAB [Suspect]
     Indication: NON-SMALL CELL LUNG CANCER
     Route: 042
     Dates: start: 20100621, end: 20100621
  6. CARDIZEM CD [Concomitant]
     Dates: start: 20020101
  7. BEVACIZUMAB [Suspect]
     Dosage: FREQUENCY: UNKNOWN
     Route: 042
     Dates: start: 20100720
  8. PACLITAXEL [Suspect]
     Indication: NON-SMALL CELL LUNG CANCER
     Route: 042
     Dates: start: 20100621, end: 20100621
  9. PACLITAXEL [Suspect]
     Route: 042
     Dates: start: 20100720
  10. LISINOPRIL [Concomitant]
     Dates: start: 19870101
  11. CELEXA [Concomitant]
     Dates: start: 20090101
  12. STALEVO 100 [Concomitant]
     Dates: start: 20090101, end: 20100709
  13. CARBOPLATIN [Suspect]
     Indication: NON-SMALL CELL LUNG CANCER
     Dosage: DOSE: 6 AUC
     Route: 042
     Dates: start: 20100621, end: 20100621
  14. AMITRIPTYLINE HCL [Concomitant]
     Dates: start: 19870101
  15. DECADRON [Concomitant]
  16. PREVPAC [Concomitant]
  17. ASPIRIN [Concomitant]
     Dates: start: 19870101

REACTIONS (4)
  - DEHYDRATION [None]
  - VOMITING [None]
  - NAUSEA [None]
  - CONFUSIONAL STATE [None]
